FAERS Safety Report 9674753 (Version 1)
Quarter: 2013Q4

REPORT INFORMATION
  Report Type: Spontaneous
  Country: US (occurrence: None)
  Receive Date: 20131106
  Receipt Date: 20131106
  Transmission Date: 20140711
  Serious: Yes (Disabling, Other)
  Sender: FDA-Public Use
  Company Number: None

PATIENT
  Age: 30 Year
  Sex: Female
  Weight: 78.02 kg

DRUGS (1)
  1. ALBUTEROL SULFATE 0.083 2.5 MG/ 3ML NEPHRON PHARMACEUTICALS CORPORATIO [Suspect]
     Indication: DYSPNOEA
     Dosage: 1 VIAL AS NEEDED INHALATION
     Route: 055
     Dates: start: 20130930, end: 20131027

REACTIONS (2)
  - Pneumonia [None]
  - Poor quality drug administered [None]
